FAERS Safety Report 21839579 (Version 3)
Quarter: 2023Q1

REPORT INFORMATION
  Report Type: Report from Study
  Country: FR (occurrence: None)
  Receive Date: 20230109
  Receipt Date: 20230223
  Transmission Date: 20230417
  Serious: Yes (Hospitalization)
  Sender: FDA-Public Use
  Company Number: 2023A000861

PATIENT
  Age: 952 Month
  Sex: Male
  Weight: 83 kg

DRUGS (4)
  1. EVUSHELD [Suspect]
     Active Substance: CILGAVIMAB\TIXAGEVIMAB
     Indication: Prophylaxis
     Dosage: DOSE UNKNOWN (TIXAGEVIMAB 150 MG/CILGAVIMAB 150 MG) ONCE/SINGLE ADMINISTRATION
     Route: 030
  2. EVUSHELD [Suspect]
     Active Substance: CILGAVIMAB\TIXAGEVIMAB
     Indication: Prophylaxis
     Dosage: DOSE UNKNOWN (TIXAGEVIMAB 150 MG/CILGAVIMAB 150 MG) ONCE/SINGLE ADMINISTRATION
     Route: 030
     Dates: start: 20220930
  3. CELLCEPT [Concomitant]
     Active Substance: MYCOPHENOLATE MOFETIL
     Indication: Immunosuppressant drug therapy
  4. TACROLIMUS [Concomitant]
     Active Substance: TACROLIMUS
     Indication: Immunosuppressant drug therapy

REACTIONS (1)
  - COVID-19 [Unknown]

NARRATIVE: CASE EVENT DATE: 20220405
